FAERS Safety Report 15236084 (Version 14)
Quarter: 2021Q1

REPORT INFORMATION
  Report Type: Other
  Country: DE (occurrence: DE)
  Receive Date: 20180803
  Receipt Date: 20210316
  Transmission Date: 20210419
  Serious: Yes (Hospitalization, Other)
  Sender: FDA-Public Use
  Company Number: DE-ROCHE-2149845

PATIENT
  Age: 63 Year
  Sex: Female
  Weight: 62 kg

DRUGS (18)
  1. ACICLOVIR [Concomitant]
     Active Substance: ACYCLOVIR
  2. OCREVUS [Suspect]
     Active Substance: OCRELIZUMAB
     Dosage: SUBSEQUENT DOSE: 23/MAY/2019 AND 24/JUN/2020
     Route: 042
     Dates: start: 20181122
  3. SALOFALK [Concomitant]
  4. BISOPROLOL [Concomitant]
     Active Substance: BISOPROLOL
  5. TOLPERISONE [Concomitant]
     Active Substance: TOLPERISONE
  6. OCREVUS [Suspect]
     Active Substance: OCRELIZUMAB
     Dosage: 5TH MAINTENANCE DOSE
     Route: 042
     Dates: start: 20201207
  7. LEVEMIR [Concomitant]
     Active Substance: INSULIN DETEMIR
     Dosage: AT NIGHT
  8. RANITIDIN [Concomitant]
     Active Substance: RANITIDINE HYDROCHLORIDE
  9. CANEPHRON [Concomitant]
     Active Substance: HERBALS
     Dosage: 0?0?1 ;
  10. MIRTAZAPIN [Concomitant]
     Active Substance: MIRTAZAPINE
     Dosage: AT NIGHT
  11. GABAPENTIN. [Concomitant]
     Active Substance: GABAPENTIN
  12. SATIVEX [Concomitant]
     Active Substance: NABIXIMOLS
  13. VIANI [Concomitant]
     Active Substance: FLUTICASONE PROPIONATE\SALMETEROL XINAFOATE
     Dosage: 50/500 MCG
  14. BEROTEC [Concomitant]
     Active Substance: FENOTEROL HYDROBROMIDE
     Dosage: 5 TIMES PER DAY
  15. FOSTER [Concomitant]
     Active Substance: BECLOMETHASONE\FORMOTEROL
     Dosage: 200/6 MCG
  16. OCREVUS [Suspect]
     Active Substance: OCRELIZUMAB
     Indication: RELAPSING-REMITTING MULTIPLE SCLEROSIS
     Dosage: SECOND HALF DOSE: 21/MAY/2018
     Route: 042
     Dates: start: 20180508
  17. TIZANIDIN [Concomitant]
     Active Substance: TIZANIDINE HYDROCHLORIDE
  18. SPIRIVA RESPIMAT [Concomitant]
     Active Substance: TIOTROPIUM BROMIDE

REACTIONS (23)
  - Cough [Recovered/Resolved]
  - Nausea [Recovered/Resolved]
  - Drug ineffective [Unknown]
  - Headache [Recovered/Resolved]
  - Abdominal pain [Not Recovered/Not Resolved]
  - Urinary tract infection [Recovered/Resolved]
  - Decreased appetite [Recovered/Resolved]
  - Weight decreased [Not Recovered/Not Resolved]
  - Gastritis [Not Recovered/Not Resolved]
  - Cataract [Recovered/Resolved]
  - Gait disturbance [Not Recovered/Not Resolved]
  - Gastrointestinal infection [Recovered/Resolved]
  - Headache [Recovered/Resolved]
  - Eye inflammation [Recovered/Resolved]
  - Gastrointestinal candidiasis [Not Recovered/Not Resolved]
  - Vomiting [Recovered/Resolved]
  - Influenza [Recovering/Resolving]
  - Body temperature increased [Recovered/Resolved]
  - Diarrhoea [Recovered/Resolved]
  - Eye infection bacterial [Recovered/Resolved]
  - Inappropriate schedule of product administration [Unknown]
  - Fatigue [Recovered/Resolved]
  - Asthenia [Not Recovered/Not Resolved]

NARRATIVE: CASE EVENT DATE: 20180521
